FAERS Safety Report 7672008-4 (Version None)
Quarter: 2011Q3

REPORT INFORMATION
  Report Type: 
  Country: None (occurrence: None)
  Receive Date: 20110809
  Receipt Date: 20110805
  Transmission Date: 20111222
  Serious: Yes (Hospitalization, Other)
  Sender: FDA-Public Use
  Company Number: GB-TEVA-295108ISR

PATIENT
  Age: 54 Year
  Sex: Male
  Weight: 89.9 kg

DRUGS (2)
  1. MESALAMINE [Suspect]
     Dosage: 2 GRAM;
     Route: 054
  2. MESALAMINE [Suspect]
     Indication: COLITIS ULCERATIVE
     Dosage: 2400 MILLIGRAM;
     Route: 048
     Dates: start: 20070101, end: 20110527

REACTIONS (8)
  - ANAEMIA [None]
  - CONTUSION [None]
  - RASH [None]
  - THROMBOCYTOPENIA [None]
  - NEUTROPENIC SEPSIS [None]
  - EOSINOPHILIA [None]
  - LEUKOPENIA [None]
  - NEUTROPENIA [None]
